FAERS Safety Report 20540430 (Version 1)
Quarter: 2022Q1

REPORT INFORMATION
  Report Type: Spontaneous
  Country: DE (occurrence: DE)
  Receive Date: 20220302
  Receipt Date: 20220302
  Transmission Date: 20220423
  Serious: Yes (Other)
  Sender: FDA-Public Use
  Company Number: DE-BAYER-2021A254897

PATIENT
  Age: 67 Year
  Sex: Male

DRUGS (2)
  1. XARELTO [Suspect]
     Active Substance: RIVAROXABAN
     Indication: Thrombosis
     Dosage: 20 MG
     Route: 048
     Dates: start: 2018
  2. SELEN [SELENIUM] [Concomitant]
     Dosage: UNK UNK, PRN

REACTIONS (3)
  - Skin exfoliation [Unknown]
  - Dry skin [Unknown]
  - Urticaria [Unknown]

NARRATIVE: CASE EVENT DATE: 20210901
